FAERS Safety Report 24791323 (Version 1)
Quarter: 2024Q4

REPORT INFORMATION
  Report Type: Spontaneous
  Country: US (occurrence: US)
  Receive Date: 20241231
  Receipt Date: 20241231
  Transmission Date: 20250114
  Serious: Yes (Other)
  Sender: SANDOZ
  Company Number: US-SANDOZ-SDZ2024US105446

PATIENT
  Sex: Female

DRUGS (5)
  1. ANASTROZOLE [Suspect]
     Active Substance: ANASTROZOLE
     Indication: Product used for unknown indication
     Dosage: UNK
     Route: 065
  2. EXEMESTANE [Suspect]
     Active Substance: EXEMESTANE
     Indication: Product used for unknown indication
     Route: 065
  3. EXEMESTANE [Suspect]
     Active Substance: EXEMESTANE
     Indication: Product used for unknown indication
     Route: 065
  4. IBRANCE [Suspect]
     Active Substance: PALBOCICLIB
     Indication: Breast cancer metastatic
     Dosage: 100 MG, QD (INDICATE NUMBER OF REFILLS: 9, 28 DAYS SUPPLY, , ADMINISTER ON DAYS 1 THROUGH 21 OF A 28
     Route: 048
  5. LETROZOLE [Suspect]
     Active Substance: LETROZOLE
     Indication: Product used for unknown indication
     Route: 065

REACTIONS (6)
  - Hypomagnesaemia [Unknown]
  - Neutropenia [Recovering/Resolving]
  - Anaemia [Unknown]
  - Oedema peripheral [Unknown]
  - Musculoskeletal discomfort [Unknown]
  - Iron deficiency anaemia [Unknown]
